FAERS Safety Report 20008760 (Version 1)
Quarter: 2021Q4

REPORT INFORMATION
  Report Type: Spontaneous
  Country: US (occurrence: US)
  Receive Date: 20211029
  Receipt Date: 20211029
  Transmission Date: 20220303
  Serious: No
  Sender: FDA-Public Use
  Company Number: US-AMGEN-USASP2021166473

PATIENT
  Sex: Male

DRUGS (1)
  1. AIMOVIG [Suspect]
     Active Substance: ERENUMAB-AOOE
     Indication: Maternal exposure during breast feeding
     Dosage: UNK
     Route: 063

REACTIONS (2)
  - Adverse drug reaction [Recovered/Resolved]
  - Exposure via breast milk [Unknown]
